FAERS Safety Report 6279404-0 (Version None)
Quarter: 2009Q3

REPORT INFORMATION
  Report Type: 
  Country: None (occurrence: None)
  Receive Date: 20090721
  Receipt Date: 20090709
  Transmission Date: 20100115
  Serious: Yes (Death, Disabling, Other)
  Sender: FDA-Public Use
  Company Number: 2007-00581

PATIENT
  Age: 65 Year
  Sex: Female
  Weight: 38 kg

DRUGS (19)
  1. VELCADE [Suspect]
     Indication: MULTIPLE MYELOMA
     Dosage: 1.5 MG,  INTRAVENOUS
     Route: 042
     Dates: start: 20061211, end: 20070113
  2. DEXAMETHASONE [Concomitant]
  3. MEROPEN (MEROPENEM) [Concomitant]
  4. SULFAMETHOXAZOLE AND TRIMETHOPRIM [Concomitant]
  5. VORICONAZOLE (VORICONAZOLE) [Concomitant]
  6. MORPHINE [Concomitant]
  7. FAMOTIDINE [Concomitant]
  8. BENZYLPENICILLIN (BENZYLPENICILLIN) [Concomitant]
  9. RED BLOOD CELLS [Concomitant]
  10. GRAN [Concomitant]
  11. PIPERACILLIN SODIUM [Concomitant]
  12. DIFLUCAN [Concomitant]
  13. ADONA (CARBAZOCHROME SODIUM SULFONATE) [Concomitant]
  14. ATARAX [Concomitant]
  15. SERENACE (HALOPERIDOL) [Concomitant]
  16. TIENAM (IMIPENEM, CILASTATIN) [Concomitant]
  17. ACYCLOVIR [Concomitant]
  18. PANTOSIN (PANTETHINE) [Concomitant]
  19. TRANSAMIN (TRANEXAMIC ACID) [Concomitant]

REACTIONS (19)
  - ANAEMIA [None]
  - CONSTIPATION [None]
  - DIARRHOEA [None]
  - DISEASE PROGRESSION [None]
  - HAEMATURIA [None]
  - HERPES ZOSTER [None]
  - HYPERPLASIA [None]
  - HYPOAESTHESIA [None]
  - INTERSTITIAL LUNG DISEASE [None]
  - LUNG NEOPLASM [None]
  - MULTIPLE MYELOMA [None]
  - PLATELET COUNT DECREASED [None]
  - PNEUMATOSIS [None]
  - PNEUMONIA [None]
  - PYREXIA [None]
  - SENSORY DISTURBANCE [None]
  - SEPTIC EMBOLUS [None]
  - SOFT TISSUE DISORDER [None]
  - WHITE BLOOD CELL COUNT DECREASED [None]
